FAERS Safety Report 23072885 (Version 4)
Quarter: 2023Q4

REPORT INFORMATION
  Report Type: Report from Study
  Country: US (occurrence: US)
  Receive Date: 20231017
  Receipt Date: 20231220
  Transmission Date: 20240110
  Serious: Yes (Death, Hospitalization, Other)
  Sender: FDA-Public Use
  Company Number: US-ABBVIE-5451173

PATIENT
  Age: 78 Year
  Sex: Female
  Weight: 46 kg

DRUGS (9)
  1. DUOPA [Suspect]
     Active Substance: CARBIDOPA\LEVODOPA
     Indication: Parkinson^s disease
     Route: 050
     Dates: start: 20220526, end: 20231120
  2. DUOPA [Suspect]
     Active Substance: CARBIDOPA\LEVODOPA
  3. BETHANECHOL [Concomitant]
     Active Substance: BETHANECHOL
     Indication: Product used for unknown indication
  4. METOPROLOL SUCCINATE [Concomitant]
     Active Substance: METOPROLOL SUCCINATE
     Indication: Product used for unknown indication
  5. VITAMIN B12 [Concomitant]
     Active Substance: CYANOCOBALAMIN
     Indication: Product used for unknown indication
  6. METOPROLOL [Concomitant]
     Active Substance: METOPROLOL
     Indication: Cardiac disorder
  7. OXYCODONE [Suspect]
     Active Substance: OXYCODONE
     Indication: Pain
     Dosage: LAST ADMIN DATE-2023
     Route: 065
     Dates: start: 202309
  8. DICYCLOMINE [Concomitant]
     Active Substance: DICYCLOMINE HYDROCHLORIDE
     Indication: Product used for unknown indication
  9. ESCITALOPRAM [Concomitant]
     Active Substance: ESCITALOPRAM OXALATE
     Indication: Product used for unknown indication

REACTIONS (7)
  - Drug dependence [Fatal]
  - Patella fracture [Not Recovered/Not Resolved]
  - Rehabilitation therapy [Unknown]
  - Pain [Not Recovered/Not Resolved]
  - Drug ineffective [Not Recovered/Not Resolved]
  - Fall [Not Recovered/Not Resolved]
  - Hospice care [Unknown]

NARRATIVE: CASE EVENT DATE: 20230903
